FAERS Safety Report 14327072 (Version 1)
Quarter: 2017Q4

REPORT INFORMATION
  Report Type: Spontaneous
  Country: FR (occurrence: FR)
  Receive Date: 20171227
  Receipt Date: 20171227
  Transmission Date: 20180321
  Serious: Yes (Life-Threatening, Other)
  Sender: FDA-Public Use
  Company Number: FR-AUROBINDO-AUR-APL-2017-47405

PATIENT
  Sex: Male

DRUGS (6)
  1. PREGABALIN. [Interacting]
     Active Substance: PREGABALIN
     Indication: PRODUCT USED FOR UNKNOWN INDICATION
     Dosage: 200 MG, UNK
     Route: 048
  2. DIAZEPAM. [Interacting]
     Active Substance: DIAZEPAM
     Indication: PRODUCT USED FOR UNKNOWN INDICATION
     Dosage: 6 MG, UNK
     Route: 048
  3. FLUCONAZOLE. [Suspect]
     Active Substance: FLUCONAZOLE
     Indication: URINARY TRACT INFECTION FUNGAL
     Dosage: 800 MG, UNK
     Route: 042
     Dates: start: 20160422
  4. OXYCODONE [Interacting]
     Active Substance: OXYCODONE
     Indication: PAIN
     Dosage: 10 MG, UNK
     Route: 065
     Dates: start: 20160412
  5. FLUCONAZOLE. [Interacting]
     Active Substance: FLUCONAZOLE
     Dosage: 400 MG, DAILY
     Route: 065
     Dates: start: 20160423
  6. OXYCODONE [Interacting]
     Active Substance: OXYCODONE
     Dosage: 60 MG, UNK
     Route: 065
     Dates: start: 20160412

REACTIONS (2)
  - Respiratory depression [Recovering/Resolving]
  - Drug interaction [Recovering/Resolving]

NARRATIVE: CASE EVENT DATE: 20160423
